FAERS Safety Report 9071464 (Version 1)
Quarter: 2013Q1

REPORT INFORMATION
  Report Type: Report from Study
  Country: US (occurrence: US)
  Receive Date: 20130129
  Receipt Date: 20130129
  Transmission Date: 20140127
  Serious: No
  Sender: FDA-Public Use
  Company Number: US-ABBOTT-12P-163-0929984-00

PATIENT
  Age: 33 Year
  Sex: Male

DRUGS (6)
  1. HUMIRA 40 MG/0.8 ML PEN [Suspect]
     Indication: CROHN^S DISEASE
     Dates: start: 20120412
  2. PREDNISONE [Concomitant]
     Indication: CROHN^S DISEASE
     Dosage: 30MG DAILY (WEANING OFF)
     Route: 048
  3. PERCOCET [Concomitant]
     Indication: PAIN
     Dosage: 4-5 TABLETS DAILY
     Route: 048
  4. NEURONTIN [Concomitant]
     Indication: PAIN
     Route: 048
  5. CIPRO [Concomitant]
     Indication: INFECTION PROPHYLAXIS
     Route: 048
  6. FLAGYL [Concomitant]
     Indication: INFECTION PROPHYLAXIS
     Route: 048

REACTIONS (1)
  - Injection site haemorrhage [Recovered/Resolved]
